FAERS Safety Report 15669301 (Version 2)
Quarter: 2018Q4

REPORT INFORMATION
  Report Type: Spontaneous
  Country: US (occurrence: US)
  Receive Date: 20181129
  Receipt Date: 20181129
  Transmission Date: 20190205
  Serious: No
  Sender: FDA-Public Use
  Company Number: US-APOTEX-2018AP006338

PATIENT
  Sex: Female

DRUGS (1)
  1. FENTANYL TRANSDERMAL SYSTEM [Suspect]
     Active Substance: FENTANYL
     Indication: PRODUCT USED FOR UNKNOWN INDICATION
     Dosage: 100MCG / HR
     Route: 062

REACTIONS (5)
  - Inappropriate release of product for distribution [Unknown]
  - Pruritus [Unknown]
  - Product adhesion issue [Unknown]
  - Erythema [Unknown]
  - Drug ineffective [Unknown]
